FAERS Safety Report 6864303-3 (Version None)
Quarter: 2010Q3

REPORT INFORMATION
  Report Type: 
  Country: None (occurrence: None)
  Receive Date: 20100721
  Receipt Date: 20080319
  Transmission Date: 20110219
  Serious: Yes (Other)
  Sender: FDA-Public Use
  Company Number: US-PFIZER INC-2008025093

PATIENT

DRUGS (2)
  1. CHANTIX [Suspect]
  2. LEXAPRO [Suspect]

REACTIONS (1)
  - CONVULSION [None]
